FAERS Safety Report 7085352-9 (Version None)
Quarter: 2010Q4

REPORT INFORMATION
  Report Type: 
  Country: None (occurrence: None)
  Receive Date: 20101105
  Receipt Date: 20101028
  Transmission Date: 20110411
  Serious: Yes (Other)
  Sender: FDA-Public Use
  Company Number: US-PFIZER INC-2010137700

PATIENT
  Sex: Female
  Weight: 56.2 kg

DRUGS (7)
  1. LYRICA [Suspect]
     Indication: SJOGREN'S SYNDROME
     Dosage: 100 MG, 2X/DAY
     Route: 048
     Dates: start: 20100801, end: 20100809
  2. TIMOLOL [Concomitant]
     Indication: PAIN
     Dosage: 50 MG, UNK
  3. NORTRIPTYLINE [Concomitant]
     Dosage: 25 MG, 2X/DAY
  4. AZATHIOPRINE [Concomitant]
     Dosage: 50 MG, 2X/DAY
  5. OXYBUTYNIN [Concomitant]
     Dosage: UNK, 2X/DAY
  6. GLUTAMINE [Concomitant]
     Dosage: UNK
  7. TUMS [Concomitant]
     Indication: GASTROOESOPHAGEAL REFLUX DISEASE
     Dosage: 500 MG, UNK

REACTIONS (3)
  - DISORIENTATION [None]
  - ILLUSION [None]
  - MEMORY IMPAIRMENT [None]
